FAERS Safety Report 4815975-6 (Version None)
Quarter: 2005Q4

REPORT INFORMATION
  Report Type: 
  Country: None (occurrence: None)
  Receive Date: 20051031
  Receipt Date: 20050829
  Transmission Date: 20060501
  Serious: Yes (Hospitalization)
  Sender: FDA-Public Use
  Company Number: US-ROCHE-416099

PATIENT
  Age: 52 Year
  Sex: Male
  Weight: 145.2 kg

DRUGS (8)
  1. PEGASYS [Suspect]
     Indication: HEPATITIS C
     Route: 058
     Dates: start: 20041215
  2. COPEGUS [Suspect]
     Indication: HEPATITIS C
     Route: 048
     Dates: start: 20041215
  3. PROCRIT [Concomitant]
     Route: 058
     Dates: start: 20050718
  4. COLCHICINE [Concomitant]
     Indication: GOUT
     Route: 048
     Dates: start: 20050615
  5. PERCOCET [Concomitant]
     Indication: GOUT
     Dates: start: 20050615
  6. PREDNISONE [Concomitant]
     Indication: GOUT
     Dates: start: 20050615
  7. MORPHINE [Concomitant]
     Indication: GOUT
     Dates: start: 20050715
  8. INDOMETHACIN [Concomitant]
     Indication: GOUT
     Dates: start: 20050715

REACTIONS (4)
  - BLOOD CHOLESTEROL INCREASED [None]
  - DYSPNOEA [None]
  - GOUT [None]
  - HAEMOGLOBIN DECREASED [None]
